FAERS Safety Report 4754832-0 (Version None)
Quarter: 2005Q3

REPORT INFORMATION
  Report Type: 
  Country: None (occurrence: None)
  Receive Date: 20050825
  Receipt Date: 20050815
  Transmission Date: 20060218
  Serious: Yes (Hospitalization)
  Sender: FDA-Public Use
  Company Number: 2005116467

PATIENT
  Age: 61 Year
  Sex: Female

DRUGS (2)
  1. LUSTRAL (SERTRALINE) [Suspect]
     Indication: DEPRESSION
     Dosage: 50 MG (50 MG, 1 IN 1 D), ORAL
     Route: 048
     Dates: start: 20050711, end: 20050725
  2. CLIMAVAL (ESTRADIOL VALERATE) [Concomitant]

REACTIONS (2)
  - CHOLELITHIASIS [None]
  - HEPATITIS [None]
